FAERS Safety Report 9457722 (Version 1)
Quarter: 2013Q3

REPORT INFORMATION
  Report Type: Spontaneous
  Country: US (occurrence: None)
  Receive Date: 20130812
  Receipt Date: 20130812
  Transmission Date: 20140515
  Serious: Yes (Life-Threatening, Hospitalization, Disabling)
  Sender: FDA-Public Use
  Company Number: None

PATIENT
  Age: 40 Year
  Sex: Female
  Weight: 70.31 kg

DRUGS (1)
  1. DOXYCYCLINE HYCLATE [Suspect]
     Route: 048
     Dates: start: 20130807, end: 20130808

REACTIONS (6)
  - Dizziness [None]
  - Burning sensation [None]
  - Nausea [None]
  - Pain [None]
  - Pain in extremity [None]
  - Middle insomnia [None]
